FAERS Safety Report 4332964-9 (Version None)
Quarter: 2004Q2

REPORT INFORMATION
  Report Type: 
  Country: None (occurrence: None)
  Receive Date: 20040405
  Receipt Date: 20040405
  Transmission Date: 20050107
  Serious: Yes (Hospitalization)
  Sender: FDA-Public Use
  Company Number: None

PATIENT
  Age: 38 Year
  Sex: Female
  Weight: 58.9676 kg

DRUGS (1)
  1. FERRLECIT [Suspect]
     Indication: ANAEMIA
     Dosage: 250 MG X 1 IV OVER 90 MIN
     Route: 042
     Dates: start: 20040121

REACTIONS (6)
  - BURNING SENSATION [None]
  - COLD SWEAT [None]
  - DYSPNOEA [None]
  - HYPOTENSION [None]
  - MUSCLE SPASMS [None]
  - PARAESTHESIA [None]
